FAERS Safety Report 9917035 (Version 2)
Quarter: 2014Q1

REPORT INFORMATION
  Report Type: Spontaneous
  Country: FR (occurrence: FR)
  Receive Date: 20140221
  Receipt Date: 20140221
  Transmission Date: 20141002
  Serious: Yes (Hospitalization)
  Sender: FDA-Public Use
  Company Number: FR-GLAXOSMITHKLINE-B0705695A

PATIENT
  Age: 70 Year
  Sex: Male

DRUGS (6)
  1. AZANTAC [Suspect]
     Indication: PRODUCT USED FOR UNKNOWN INDICATION
     Dosage: 200MG PER DAY
     Route: 042
     Dates: start: 20110131, end: 20110204
  2. ERYTHROCINE [Concomitant]
     Dosage: 750MG PER DAY
     Route: 042
     Dates: start: 20110113, end: 20110204
  3. DOBUTREX [Concomitant]
     Route: 065
     Dates: start: 20110123, end: 20110206
  4. ACTRAPID [Concomitant]
     Route: 042
     Dates: start: 20110109, end: 20110209
  5. CALCIPARINE [Concomitant]
     Dosage: 10000IU PER DAY
     Dates: start: 20110113, end: 20110209
  6. INEXIUM [Concomitant]
     Dosage: 40MG PER DAY
     Route: 042
     Dates: start: 20110120, end: 20110130

REACTIONS (1)
  - Eosinophilia [Not Recovered/Not Resolved]
